FAERS Safety Report 5215058-X (Version None)
Quarter: 2007Q1

REPORT INFORMATION
  Report Type: 
  Country: None (occurrence: None)
  Receive Date: 20070122
  Receipt Date: 20070116
  Transmission Date: 20070707
  Serious: Yes (Hospitalization, Other)
  Sender: FDA-Public Use
  Company Number: BE-MERCK-0611BEL00029

PATIENT
  Age: 9 Year
  Sex: Female

DRUGS (4)
  1. SINGULAIR [Suspect]
     Indication: ASTHMA
     Route: 048
     Dates: start: 20031105
  2. SINGULAIR [Suspect]
     Route: 048
     Dates: start: 20061102, end: 20061107
  3. AMOXICILLIN AND CLAVULANATE POTASSIUM [Concomitant]
     Indication: BRONCHITIS
     Route: 048
     Dates: start: 20061102, end: 20061107
  4. FENOTEROL HYDROBROMIDE AND IPRATROPIUM BROMIDE [Concomitant]
     Indication: ASTHMA
     Dates: start: 20061102

REACTIONS (3)
  - ABNORMAL BEHAVIOUR [None]
  - BALANCE DISORDER [None]
  - HEADACHE [None]
